FAERS Safety Report 6067561-0 (Version None)
Quarter: 2009Q1

REPORT INFORMATION
  Report Type: 
  Country: None (occurrence: None)
  Receive Date: 20090205
  Receipt Date: 20090203
  Transmission Date: 20090719
  Serious: Yes (Other)
  Sender: FDA-Public Use
  Company Number: US-ASTRAZENECA-2009UW03237

PATIENT
  Sex: Female
  Weight: 70.3 kg

DRUGS (11)
  1. CRESTOR [Suspect]
     Route: 048
  2. METOPROLOL SUCCINATE [Concomitant]
     Route: 048
  3. FUROSEMIDE [Concomitant]
  4. EFFEXOR [Concomitant]
  5. LORATADINE [Concomitant]
     Indication: MULTIPLE ALLERGIES
  6. COMBIVENT [Concomitant]
  7. ALBUTEROL [Concomitant]
  8. FLOVENT [Concomitant]
  9. TUMS [Concomitant]
  10. VITAMINS [Concomitant]
  11. ASPIRIN [Concomitant]

REACTIONS (3)
  - ESCHERICHIA BACTERAEMIA [None]
  - NEURITIS [None]
  - RENAL IMPAIRMENT [None]
